FAERS Safety Report 6903240-2 (Version None)
Quarter: 2010Q3

REPORT INFORMATION
  Report Type: 
  Country: None (occurrence: None)
  Receive Date: 20100803
  Receipt Date: 20080724
  Transmission Date: 20110219
  Serious: Yes (Other)
  Sender: FDA-Public Use
  Company Number: US-PFIZER INC-2008050794

PATIENT
  Sex: Female
  Weight: 77.1 kg

DRUGS (6)
  1. LYRICA [Suspect]
     Indication: PAIN
     Dates: start: 20080601, end: 20080601
  2. LYRICA [Suspect]
     Indication: FATIGUE
  3. LYRICA [Suspect]
     Indication: FIBROMYALGIA
  4. LOVASTATIN [Suspect]
     Dates: start: 20080101, end: 20080601
  5. CARBATROL [Concomitant]
     Indication: CONVULSION
  6. ATENOLOL [Concomitant]

REACTIONS (14)
  - ARTHRALGIA [None]
  - ASTHENIA [None]
  - BLOOD IRON DECREASED [None]
  - BLOOD SODIUM DECREASED [None]
  - DYSPNOEA [None]
  - FATIGUE [None]
  - GAIT DISTURBANCE [None]
  - HYPOAESTHESIA [None]
  - JOINT SWELLING [None]
  - LETHARGY [None]
  - MOBILITY DECREASED [None]
  - OEDEMA PERIPHERAL [None]
  - PAIN [None]
  - PAIN IN EXTREMITY [None]
